FAERS Safety Report 8085352-6 (Version None)
Quarter: 2012Q1

REPORT INFORMATION
  Report Type: 
  Country: None (occurrence: None)
  Receive Date: 20120128
  Receipt Date: 20110504
  Transmission Date: 20120608
  Serious: Yes (Other)
  Sender: FDA-Public Use
  Company Number: US-ABBOTT-10P-163-0654801-00

PATIENT
  Sex: Female

DRUGS (9)
  1. FOLIC ACID [Concomitant]
     Indication: PRODUCT USED FOR UNKNOWN INDICATION
  2. REMERON [Concomitant]
     Indication: ANXIETY
  3. DARVOCET [Concomitant]
     Indication: PRODUCT USED FOR UNKNOWN INDICATION
  4. REMERON [Concomitant]
     Indication: INSOMNIA
  5. HUMIRA [Suspect]
     Indication: CROHN'S DISEASE
     Dates: start: 20090409, end: 20090806
  6. PREDNISONE TAB [Concomitant]
     Dates: start: 20090409, end: 20090512
  7. ENTOCORT EC [Concomitant]
     Indication: CROHN'S DISEASE
  8. ZANTAC [Concomitant]
     Indication: GASTROOESOPHAGEAL REFLUX DISEASE
  9. PREDNISONE TAB [Concomitant]
     Indication: CROHN'S DISEASE
     Dates: start: 20090512

REACTIONS (6)
  - BACK PAIN [None]
  - ARTHRALGIA [None]
  - ALOPECIA [None]
  - DIARRHOEA [None]
  - STRESS [None]
  - NEUROENDOCRINE CARCINOMA [None]
